FAERS Safety Report 21121466 (Version 1)
Quarter: 2022Q3

REPORT INFORMATION
  Report Type: Spontaneous
  Country: NL (occurrence: NL)
  Receive Date: 20220722
  Receipt Date: 20220722
  Transmission Date: 20221027
  Serious: Yes (Other)
  Sender: FDA-Public Use
  Company Number: None

PATIENT
  Age: 79 Year
  Sex: Female
  Weight: 80.8 kg

DRUGS (13)
  1. CLINDAMYCIN [Suspect]
     Active Substance: CLINDAMYCIN
     Indication: Cellulitis
     Dosage: 600 MILLIGRAM, Q8H (3 X PER DAY 2 PIECES)
     Route: 065
     Dates: start: 20220615, end: 20220617
  2. CLOPIDOGREL [Concomitant]
     Active Substance: CLOPIDOGREL BISULFATE
     Dosage: 75 MILLIGRAM, QD (1X PER DAY 1 PIECE)
     Route: 065
  3. CALCIUM CARBONATE\CHOLECALCIFEROL [Concomitant]
     Active Substance: CALCIUM CARBONATE\CHOLECALCIFEROL
     Dosage: 1 DOSAGE FORM, QD (1X PER DAY 1 PIECE)
     Route: 065
  4. OXAZEPAM [Concomitant]
     Active Substance: OXAZEPAM
     Dosage: 1 DOSAGE FORM (AS NEEDED)
     Route: 065
  5. POLYETHYLENE GLYCOLS [Concomitant]
     Active Substance: POLYETHYLENE GLYCOLS
     Dosage: 1 DOSAGE FORM, QD (1X PER DAY 1 PIECE)
     Route: 065
  6. ALENDRONIC ACID [Concomitant]
     Active Substance: ALENDRONIC ACID
     Dosage: 70 MILLIGRAM, QW (1X PER WEEK ON FRIDAY 1 PIECE)
     Route: 065
  7. PHOSPHORIC ACID\SODIUM PHOSPHATE, DIBASIC [Concomitant]
     Active Substance: PHOSPHORIC ACID\SODIUM PHOSPHATE, DIBASIC
     Dosage: 1 DOSAGE FORM (USE AS NEEDED)
     Route: 065
  8. PANTOPRAZOLE SODIUM [Concomitant]
     Active Substance: PANTOPRAZOLE SODIUM
     Dosage: 20 MILLIGRAM, QD (1X PER DAY 1 PIECE)
     Route: 065
  9. FOLIC ACID [Concomitant]
     Active Substance: FOLIC ACID
     Dosage: 5 MILLIGRAM, QW (1X PER WEEK ON FRIDAY 1 PIECE)
     Route: 065
  10. LACTULOSESTROOP [Concomitant]
     Dosage: 15 MILLILITER, QD (1X PER DAY 15 ML)
     Route: 065
  11. METHOTREXATE (METHOTREXATE SODIUM) [Concomitant]
     Active Substance: METHOTREXATE SODIUM
     Dosage: 10 MILLIGRAM, QW (1X WEEK ON TUESDAY 4 PIECES)
     Route: 065
  12. LUMIGAN [Concomitant]
     Active Substance: BIMATOPROST
     Dosage: 1 DROP, QD (1 X PER DAY 1 DROP)
     Route: 065
  13. ACETAMINOPHEN [Concomitant]
     Active Substance: ACETAMINOPHEN
     Dosage: 1000 MILLIGRAM, Q8H (3 X PER DAY 2 PIECES)
     Route: 065

REACTIONS (3)
  - Angioedema [Recovered/Resolved]
  - Lip swelling [Unknown]
  - Paraesthesia oral [Unknown]

NARRATIVE: CASE EVENT DATE: 20220615
